FAERS Safety Report 18283876 (Version 1)
Quarter: 2020Q3

REPORT INFORMATION
  Report Type: Spontaneous
  Country: DE (occurrence: DE)
  Receive Date: 20200918
  Receipt Date: 20200918
  Transmission Date: 20201103
  Serious: Yes (Disabling, Other)
  Sender: FDA-Public Use
  Company Number: DE-PFIZER INC-2020360483

PATIENT
  Age: 80 Year
  Sex: Male

DRUGS (10)
  1. MEMANTIN [Concomitant]
     Active Substance: MEMANTINE
     Indication: DEMENTIA
     Dosage: UNK
  2. TORASEMIDE [Concomitant]
     Active Substance: TORSEMIDE
     Dosage: 50 MG
  3. ATORVASTATIN [Concomitant]
     Active Substance: ATORVASTATIN
     Dosage: UNK
  4. FALITHROM [Concomitant]
     Active Substance: PHENPROCOUMON
     Dosage: UNK
  5. TORASEMIDE [Concomitant]
     Active Substance: TORSEMIDE
     Dosage: 20 MG
  6. ENTRESTO [Suspect]
     Active Substance: SACUBITRIL\VALSARTAN
     Indication: CARDIAC FAILURE CHRONIC
     Dosage: 1 DF (24/26MG)
     Dates: start: 202003, end: 20200806
  7. METOPROLOL. [Concomitant]
     Active Substance: METOPROLOL
     Dosage: UNK (27.5)
  8. DIGIMERCK [Concomitant]
     Active Substance: DIGITOXIN
     Dosage: UNK
  9. SITAGLIPTIN [Concomitant]
     Active Substance: SITAGLIPTIN
     Indication: DIABETES MELLITUS
     Dosage: UNK
  10. EPLERENONE. [Suspect]
     Active Substance: EPLERENONE
     Dosage: UNK
     Dates: start: 202003, end: 202003

REACTIONS (4)
  - Peripheral swelling [Recovered/Resolved]
  - Joint swelling [Recovered/Resolved]
  - Diarrhoea [Unknown]
  - Bedridden [Not Recovered/Not Resolved]

NARRATIVE: CASE EVENT DATE: 2020
